FAERS Safety Report 5941060-6 (Version None)
Quarter: 2008Q4

REPORT INFORMATION
  Report Type: 
  Country: None (occurrence: None)
  Receive Date: 20081104
  Receipt Date: 20081027
  Transmission Date: 20090506
  Serious: Yes (Other)
  Sender: FDA-Public Use
  Company Number: US-ROXANE LABORATORIES, INC.-2008-RO-00168RO

PATIENT
  Age: 46 Year
  Sex: Male

DRUGS (4)
  1. METHADONE HCL [Suspect]
     Indication: ANALGESIA
     Route: 042
  2. FENTANYL [Suspect]
     Indication: ANALGESIA
  3. TPN [Suspect]
     Indication: MALABSORPTION
  4. DEXTROSE [Suspect]
     Indication: HYPOGLYCAEMIA

REACTIONS (1)
  - HYPOGLYCAEMIA [None]
